FAERS Safety Report 15215778 (Version 1)
Quarter: 2018Q3

REPORT INFORMATION
  Report Type: Report from Study
  Country: FR (occurrence: FR)
  Receive Date: 20180730
  Receipt Date: 20180730
  Transmission Date: 20181010
  Serious: Yes (Other)
  Sender: FDA-Public Use
  Company Number: FR-TEVA-2018-FR-932350

PATIENT
  Age: 78 Year
  Sex: Male

DRUGS (24)
  1. LEUCOVORIN. [Suspect]
     Active Substance: LEUCOVORIN
     Indication: COLORECTAL CANCER METASTATIC
     Route: 041
     Dates: start: 20160301, end: 20160301
  2. SPIRIVA [Concomitant]
     Active Substance: TIOTROPIUM BROMIDE MONOHYDRATE
     Route: 065
     Dates: start: 2015
  3. EMEND [Concomitant]
     Active Substance: APREPITANT
     Indication: PROPHYLAXIS
     Route: 065
     Dates: start: 20160301, end: 20160301
  4. ATHYMIL [Concomitant]
     Active Substance: MIANSERIN HYDROCHLORIDE
     Route: 065
     Dates: start: 2015
  5. AFLIBERCEPT [Suspect]
     Active Substance: AFLIBERCEPT
     Route: 041
     Dates: start: 20160126, end: 20160126
  6. MIANSERIN [Concomitant]
     Active Substance: MIANSERIN
     Route: 065
     Dates: start: 20160212
  7. SEROPLEX [Concomitant]
     Active Substance: ESCITALOPRAM OXALATE
     Route: 065
     Dates: start: 2015
  8. IRINOTECAN [Suspect]
     Active Substance: IRINOTECAN
     Dates: start: 20160301, end: 20160301
  9. JOSIR [Concomitant]
     Active Substance: TAMSULOSIN
     Route: 065
     Dates: start: 2015
  10. BUDESONIDE, FORMOTEROL [Concomitant]
     Route: 065
     Dates: start: 2015
  11. INEXIUM [Concomitant]
     Active Substance: ESOMEPRAZOLE
     Route: 065
     Dates: start: 2015
  12. SYMBICORD [Concomitant]
     Active Substance: BUDESONIDE\FORMOTEROL
     Route: 065
     Dates: start: 2015
  13. LYRICA [Concomitant]
     Active Substance: PREGABALIN
     Route: 065
     Dates: start: 20160212
  14. ATROPINE. [Concomitant]
     Active Substance: ATROPINE
     Indication: PROPHYLAXIS
     Route: 065
     Dates: start: 20160301, end: 20160301
  15. TAHOR [Concomitant]
     Active Substance: ATORVASTATIN CALCIUM
     Route: 065
     Dates: start: 2015
  16. 5?FU [Suspect]
     Active Substance: FLUOROURACIL
     Route: 041
     Dates: start: 20160301, end: 20160301
  17. IRINOTECAN [Suspect]
     Active Substance: IRINOTECAN
     Indication: COLORECTAL CANCER METASTATIC
     Route: 041
     Dates: start: 20160126, end: 20160126
  18. LEUCOVORIN. [Suspect]
     Active Substance: LEUCOVORIN
     Route: 041
     Dates: start: 20160126, end: 20160126
  19. AFLIBERCEPT [Suspect]
     Active Substance: AFLIBERCEPT
     Indication: COLORECTAL CANCER METASTATIC
     Route: 041
     Dates: start: 20160301, end: 20160301
  20. TARDYFERON [Concomitant]
     Active Substance: FERROUS SULFATE
     Route: 065
     Dates: start: 20151020
  21. 5?FU [Suspect]
     Active Substance: FLUOROURACIL
     Indication: COLORECTAL CANCER METASTATIC
     Route: 041
     Dates: start: 20160126, end: 20160126
  22. ONDANSETRON [Concomitant]
     Active Substance: ONDANSETRON
     Indication: PROPHYLAXIS
     Route: 065
     Dates: start: 20160301, end: 20160301
  23. EUPANTOL [Concomitant]
     Active Substance: PANTOPRAZOLE SODIUM
     Route: 065
     Dates: start: 20160212
  24. KARDEGIC [Concomitant]
     Active Substance: ASPIRIN DL-LYSINE
     Route: 065
     Dates: start: 2015

REACTIONS (1)
  - Aortic stenosis [Recovered/Resolved]

NARRATIVE: CASE EVENT DATE: 20160307
